FAERS Safety Report 13450911 (Version 1)
Quarter: 2017Q2

REPORT INFORMATION
  Report Type: Spontaneous
  Country: US (occurrence: US)
  Receive Date: 20170418
  Receipt Date: 20170418
  Transmission Date: 20170830
  Serious: Yes (Life-Threatening, Hospitalization, Other)
  Sender: FDA-Public Use
  Company Number: US-MACLEODS PHARMACEUTICALS US LTD-MAC2017004692

PATIENT

DRUGS (2)
  1. METFORMIN HYDROCHLORIDE. [Suspect]
     Active Substance: METFORMIN HYDROCHLORIDE
     Indication: TYPE 2 DIABETES MELLITUS
     Dosage: UNK
     Route: 065
  2. BACTRIM [Concomitant]
     Active Substance: SULFAMETHOXAZOLE\TRIMETHOPRIM
     Indication: DYSURIA
     Dosage: UNK
     Route: 065

REACTIONS (12)
  - Ventricular hypokinesia [Unknown]
  - Lactic acidosis [Unknown]
  - Back pain [Unknown]
  - Tachypnoea [Unknown]
  - Nausea [Unknown]
  - Abdominal pain [Unknown]
  - Emotional distress [Unknown]
  - Hypotension [Unknown]
  - Diarrhoea [Unknown]
  - Ejection fraction decreased [Unknown]
  - Vomiting [Unknown]
  - Acute kidney injury [Recovering/Resolving]
